FAERS Safety Report 5624260-4 (Version None)
Quarter: 2008Q1

REPORT INFORMATION
  Report Type: 
  Country: None (occurrence: None)
  Receive Date: 20080213
  Receipt Date: 20080204
  Transmission Date: 20080703
  Serious: Yes (Other)
  Sender: FDA-Public Use
  Company Number: CS-NOVOPROD-271833

PATIENT
  Age: 18 Month
  Sex: Female
  Weight: 11 kg

DRUGS (1)
  1. MIXTARD HUMAN 70/30 [Suspect]
     Indication: TYPE 1 DIABETES MELLITUS
     Dosage: 0.5 UNITS/KG
     Route: 058
     Dates: start: 20061201

REACTIONS (1)
  - ILEUS PARALYTIC [None]
